FAERS Safety Report 10159904 (Version 1)
Quarter: 2014Q2

REPORT INFORMATION
  Report Type: Spontaneous
  Country: US (occurrence: US)
  Receive Date: 20140508
  Receipt Date: 20140508
  Transmission Date: 20141212
  Serious: No
  Sender: FDA-Public Use
  Company Number: US-GLAXOSMITHKLINE-A1040536A

PATIENT
  Age: 54 Year
  Sex: Female

DRUGS (8)
  1. TYKERB [Suspect]
     Indication: BREAST CANCER
     Dosage: 1250MG PER DAY
     Route: 048
  2. UNKNOWN MEDICATION [Suspect]
  3. XELODA [Concomitant]
  4. VITAMIN B-12 [Concomitant]
  5. VITAMIN D3 [Concomitant]
  6. KEPPRA [Concomitant]
  7. FISH OIL [Concomitant]
  8. CALCIUM D [Concomitant]

REACTIONS (3)
  - Skin discolouration [Not Recovered/Not Resolved]
  - Dysgeusia [Not Recovered/Not Resolved]
  - Nasopharyngitis [Not Recovered/Not Resolved]
